FAERS Safety Report 7543085-6 (Version None)
Quarter: 2011Q2

REPORT INFORMATION
  Report Type: 
  Country: None (occurrence: None)
  Receive Date: 20110613
  Receipt Date: 20110608
  Transmission Date: 20111010
  Serious: Yes (Death, Hospitalization)
  Sender: FDA-Public Use
  Company Number: PHHY2011NO49673

PATIENT
  Sex: Female

DRUGS (3)
  1. BUMETANIDE [Concomitant]
  2. IRBESARTAN [Concomitant]
  3. ZOLEDRONIC ACID [Suspect]
     Indication: OSTEOPOROSIS
     Route: 042

REACTIONS (7)
  - LEFT VENTRICULAR HYPERTROPHY [None]
  - SUBDURAL HAEMORRHAGE [None]
  - HYDRONEPHROSIS [None]
  - CARDIAC FAILURE [None]
  - CONCOMITANT DISEASE AGGRAVATED [None]
  - RENAL FAILURE [None]
  - DYSPNOEA [None]
